FAERS Safety Report 10375397 (Version 1)
Quarter: 2014Q1

REPORT INFORMATION
  Report Type: Spontaneous
  Country: US (occurrence: None)
  Receive Date: 20140306
  Receipt Date: 20140306
  Transmission Date: 20141002
  Serious: Yes (Other)
  Sender: FDA-Public Use
  Company Number: 163-21880-12120867

PATIENT
  Age: 70 Year
  Sex: Male

DRUGS (9)
  1. REVLIMID [Suspect]
     Indication: PLASMA CELL MYELOMA
     Dosage: 25 MG, 14 IIN 21 D, PO
     Route: 048
     Dates: start: 20121109
  2. REVLIMID [Suspect]
     Indication: PLASMACYTOMA
     Dosage: 25 MG, 14 IIN 21 D, PO
     Route: 048
     Dates: start: 20121109
  3. BORTEZOMIB [Concomitant]
  4. DEXAMETHASONE [Concomitant]
  5. ACYCLOVIR (ACICLOVIR) (ACICLOVIR) [Concomitant]
  6. STEROIDS (ANABOLIC STEROIDS) [Concomitant]
  7. AMLODIPINE [Concomitant]
  8. COREG (CARVEDILOL) [Concomitant]
  9. CHEMOTHERAPY (CHEMOTHERAPEUTICS) [Concomitant]

REACTIONS (8)
  - Hypotension [None]
  - Psychomotor hyperactivity [None]
  - Fatigue [None]
  - Diarrhoea [None]
  - Pyrexia [None]
  - Anaemia [None]
  - Rash pruritic [None]
  - Oedema peripheral [None]
